FAERS Safety Report 4591081-3 (Version None)
Quarter: 2005Q1

REPORT INFORMATION
  Report Type: 
  Country: None (occurrence: None)
  Receive Date: 20050225
  Receipt Date: 20050222
  Transmission Date: 20050727
  Serious: Yes (Other)
  Sender: FDA-Public Use
  Company Number: 200510604JP

PATIENT
  Age: 71 Year
  Sex: Male

DRUGS (2)
  1. KETEK [Suspect]
     Indication: PHARYNGITIS
     Route: 048
     Dates: start: 20050201
  2. KETEK [Suspect]
     Indication: SINUSITIS
     Route: 048
     Dates: start: 20050201

REACTIONS (3)
  - HYPERSOMNIA [None]
  - LOSS OF CONSCIOUSNESS [None]
  - ROAD TRAFFIC ACCIDENT [None]
